FAERS Safety Report 5817911-2 (Version None)
Quarter: 2008Q3

REPORT INFORMATION
  Report Type: 
  Country: None (occurrence: None)
  Receive Date: 20080722
  Receipt Date: 20070627
  Transmission Date: 20090109
  Serious: Yes (Other)
  Sender: FDA-Public Use
  Company Number: US-BAYER-US-2007-024017

PATIENT
  Age: 29 Year
  Sex: Male
  Weight: 63 kg

DRUGS (1)
  1. MAGNEVIST [Suspect]
     Indication: NUCLEAR MAGNETIC RESONANCE IMAGING BRAIN
     Dosage: UNIT DOSE: 12 ML
     Route: 042
     Dates: start: 20070626, end: 20070626

REACTIONS (1)
  - CONVULSION [None]
